FAERS Safety Report 5679094-1 (Version None)
Quarter: 2008Q1

REPORT INFORMATION
  Report Type: 
  Country: None (occurrence: None)
  Receive Date: 20080324
  Receipt Date: 20080324
  Transmission Date: 20080703
  Serious: No
  Sender: FDA-Public Use
  Company Number: None

PATIENT
  Age: 33 Year
  Sex: Male

DRUGS (2)
  1. EPINEPHRINE [Suspect]
     Dosage: INJECTABLE
  2. EPINEPHRINE [Suspect]
     Dosage: INJECTABLE

REACTIONS (6)
  - ANXIETY [None]
  - CHEST PAIN [None]
  - DISTURBANCE IN ATTENTION [None]
  - ELECTROCARDIOGRAM ABNORMAL [None]
  - MEDICATION ERROR [None]
  - OVERDOSE [None]
